FAERS Safety Report 5343489-6 (Version None)
Quarter: 2007Q2

REPORT INFORMATION
  Report Type: 
  Country: None (occurrence: None)
  Receive Date: 20070604
  Receipt Date: 20070522
  Transmission Date: 20071010
  Serious: Yes (Other)
  Sender: FDA-Public Use
  Company Number: US-JNJFOC-20070307065

PATIENT
  Sex: Female
  Weight: 46.49 kg

DRUGS (17)
  1. REMICADE [Suspect]
     Route: 042
  2. REMICADE [Suspect]
     Indication: COLITIS ULCERATIVE
     Route: 042
  3. ZYRTEC [Concomitant]
     Indication: PREMEDICATION
  4. ASPIRIN [Concomitant]
  5. DIGITEK [Concomitant]
  6. BENICAR HCT [Concomitant]
     Dosage: 40-12.5 MG
  7. LOVASTATIN [Concomitant]
  8. GLY-METAFORM DIABETES [Concomitant]
     Indication: DIABETES MELLITUS
     Dosage: 5-500
  9. MOXIPRIL [Concomitant]
  10. DILTIAZEM HCL [Concomitant]
  11. FOLIC ACID [Concomitant]
  12. LACTOBACILLUS [Concomitant]
  13. SULFASALAZINE [Concomitant]
  14. LEVSIN SL [Concomitant]
  15. ROWASA [Concomitant]
  16. NORVASC [Concomitant]
  17. ROWASA [Concomitant]

REACTIONS (6)
  - BLOOD PRESSURE DECREASED [None]
  - DIZZINESS [None]
  - INFUSION RELATED REACTION [None]
  - NAUSEA [None]
  - PULSE ABSENT [None]
  - VOMITING [None]
